FAERS Safety Report 5070529-4 (Version None)
Quarter: 2006Q3

REPORT INFORMATION
  Report Type: 
  Country: None (occurrence: None)
  Receive Date: 20060804
  Receipt Date: 20060623
  Transmission Date: 20061208
  Serious: Yes (Hospitalization)
  Sender: FDA-Public Use
  Company Number: PHBS2006JP09584

PATIENT

DRUGS (1)
  1. TEGRETOL [Suspect]
     Route: 048
     Dates: start: 20060609

REACTIONS (7)
  - BLOOD URINE PRESENT [None]
  - HAEMATURIA [None]
  - LYMPHADENOPATHY [None]
  - PYREXIA [None]
  - SPECIFIC GRAVITY URINE DECREASED [None]
  - UROBILIN URINE PRESENT [None]
  - WHITE BLOOD CELL COUNT INCREASED [None]
